FAERS Safety Report 23299571 (Version 1)
Quarter: 2023Q4

REPORT INFORMATION
  Report Type: Spontaneous
  Country: IT (occurrence: IT)
  Receive Date: 20231215
  Receipt Date: 20231215
  Transmission Date: 20240109
  Serious: Yes (Hospitalization)
  Sender: FDA-Public Use
  Company Number: None

PATIENT
  Age: 84 Year

DRUGS (10)
  1. CLOPIDOGREL [Suspect]
     Active Substance: CLOPIDOGREL BISULFATE
     Indication: Arrhythmia prophylaxis
     Dosage: 75MG/DAY
     Route: 048
     Dates: end: 20231102
  2. BISOPROLOL [Concomitant]
     Active Substance: BISOPROLOL\BISOPROLOL FUMARATE
     Dosage: 1 CAP/DAY OF 2.5MG AND 1 CAP/DAY OF 1.25MG
     Route: 048
  3. CORDARONE [Concomitant]
     Active Substance: AMIODARONE HYDROCHLORIDE
     Dosage: 200 MG 5 TIMES A WEEK
     Route: 048
  4. NIFEREX [Concomitant]
     Dosage: 100 MG/DAY
     Route: 048
  5. FOLINA [Concomitant]
     Dosage: 5 MG/DAY
     Route: 048
  6. ROCALTROL [Concomitant]
     Active Substance: CALCITRIOL
     Dosage: 2 CAPS/DAY
     Route: 048
  7. XARELTO [Suspect]
     Active Substance: RIVAROXABAN
     Indication: Arrhythmia prophylaxis
     Dosage: 15 MG 1CAPS/DAY
     Route: 048
     Dates: end: 20231102
  8. LUVION [Concomitant]
     Dosage: 50 MG/DAY
     Route: 048
  9. AUROZEB [Concomitant]
     Dosage: 10MG/10MG 1CAP/DAY
     Route: 048
  10. LANSOPRAZOLE [Concomitant]
     Active Substance: LANSOPRAZOLE
     Dosage: 30 MG/DAY
     Route: 048

REACTIONS (2)
  - Gastrointestinal haemorrhage [Recovering/Resolving]
  - Melaena [Recovering/Resolving]

NARRATIVE: CASE EVENT DATE: 20231102
